FAERS Safety Report 6521998-1 (Version None)
Quarter: 2009Q4

REPORT INFORMATION
  Report Type: 
  Country: None (occurrence: None)
  Receive Date: 20091230
  Receipt Date: 20091216
  Transmission Date: 20100525
  Serious: Yes (Hospitalization, Other)
  Sender: FDA-Public Use
  Company Number: FR-PFIZER INC-2009311543

PATIENT
  Age: 11 Year
  Sex: Female

DRUGS (5)
  1. AMOXICILLIN AND AMOXICILLIN TRIHYDRATE [Suspect]
     Dosage: UNK
     Dates: start: 20091207, end: 20091201
  2. ZARONTIN [Suspect]
     Indication: EPILEPSY
     Dosage: UNK
     Dates: start: 20091123
  3. DEPAKENE [Concomitant]
     Indication: EPILEPSY
     Dosage: UNK
     Dates: start: 20090701
  4. ORELOX [Concomitant]
     Dosage: UNK
     Dates: start: 20091201, end: 20091213
  5. OROKEN [Concomitant]
     Dosage: UNK
     Dates: start: 20091213

REACTIONS (6)
  - DRUG RASH WITH EOSINOPHILIA AND SYSTEMIC SYMPTOMS [None]
  - LUNG DISORDER [None]
  - LYMPHADENOPATHY [None]
  - PYREXIA [None]
  - RASH ERYTHEMATOUS [None]
  - RASH PRURITIC [None]
